FAERS Safety Report 18975756 (Version 1)
Quarter: 2021Q1

REPORT INFORMATION
  Report Type: Spontaneous
  Country: HR (occurrence: HR)
  Receive Date: 20210305
  Receipt Date: 20210305
  Transmission Date: 20210420
  Serious: Yes (Other)
  Sender: FDA-Public Use
  Company Number: HR-PFIZER INC-2021221442

PATIENT
  Age: 17 Year
  Sex: Male

DRUGS (4)
  1. MISAR [ALPRAZOLAM] [Suspect]
     Active Substance: ALPRAZOLAM
     Dosage: 10 MG, SINGLE (20 TBL MISAR 0.5 MG, TOTAL 10 MG)
     Route: 048
     Dates: start: 202101, end: 202101
  2. NORMABEL [Suspect]
     Active Substance: DIAZEPAM
     Dosage: 10 MG, SINGLE (1 TBL NORMABEL, TOTAL 10 MG)
     Route: 048
     Dates: start: 202101, end: 202101
  3. ZOLOFT [Suspect]
     Active Substance: SERTRALINE HYDROCHLORIDE
     Dosage: 1250 MG, SINGLE (25 TBL ZOLOFT 50 MG, TOTAL 1250 MG)
     Route: 048
     Dates: start: 202101, end: 202101
  4. ZALDIAR [Suspect]
     Active Substance: ACETAMINOPHEN\TRAMADOL HYDROCHLORIDE
     Dosage: UNK (UNKNOWN QUANTITY OF ZALDIAR)
     Route: 048
     Dates: start: 202101, end: 202101

REACTIONS (4)
  - Somnolence [Unknown]
  - Tremor [Unknown]
  - Intentional overdose [Unknown]
  - Suicide attempt [Unknown]

NARRATIVE: CASE EVENT DATE: 202101
